FAERS Safety Report 20877392 (Version 1)
Quarter: 2022Q2

REPORT INFORMATION
  Report Type: Spontaneous
  Country: IT (occurrence: None)
  Receive Date: 20220526
  Receipt Date: 20220526
  Transmission Date: 20220720
  Serious: Yes (Hospitalization)
  Sender: FDA-Public Use
  Company Number: 2022A188907

PATIENT
  Age: 22 Year
  Sex: Female

DRUGS (6)
  1. QUETIAPINE FUMARATE [Suspect]
     Active Substance: QUETIAPINE FUMARATE
     Dosage: 250.0MG ONCE/SINGLE ADMINISTRATION
     Route: 048
     Dates: start: 20210924, end: 20210924
  2. ATARAX [Suspect]
     Active Substance: HYDROXYZINE HYDROCHLORIDE
     Dosage: 8.0DF ONCE/SINGLE ADMINISTRATION
     Route: 048
     Dates: start: 20210924, end: 20210924
  3. GABAPENTIN [Suspect]
     Active Substance: GABAPENTIN
     Dosage: 1700.0MG ONCE/SINGLE ADMINISTRATION
     Route: 048
     Dates: start: 20210924, end: 20210924
  4. PAROXETINE HYDROCHLORIDE [Suspect]
     Active Substance: PAROXETINE HYDROCHLORIDE
     Dosage: 12.0DF ONCE/SINGLE ADMINISTRATION
     Route: 048
     Dates: start: 20210924, end: 20210924
  5. TRAZODONE HYDROCHLORIDE [Suspect]
     Active Substance: TRAZODONE HYDROCHLORIDE
     Dosage: 10.0DF ONCE/SINGLE ADMINISTRATION
     Route: 048
     Dates: start: 20210924, end: 20210924
  6. LYRICA [Suspect]
     Active Substance: PREGABALIN
     Dosage: 250.0MG ONCE/SINGLE ADMINISTRATION
     Route: 048
     Dates: start: 20210924, end: 20210924

REACTIONS (3)
  - Suicide attempt [Unknown]
  - Bradyphrenia [Unknown]
  - Sopor [Unknown]

NARRATIVE: CASE EVENT DATE: 20210924
